FAERS Safety Report 17965267 (Version 1)
Quarter: 2020Q3

REPORT INFORMATION
  Report Type: Spontaneous
  Country: US (occurrence: US)
  Receive Date: 20200701
  Receipt Date: 20200701
  Transmission Date: 20201103
  Serious: Yes (Other)
  Sender: FDA-Public Use
  Company Number: US-BRISTOL-MYERS SQUIBB COMPANY-BMS-2020-049332

PATIENT
  Sex: Male
  Weight: 83.9 kg

DRUGS (4)
  1. COREG [Concomitant]
     Active Substance: CARVEDILOL
     Indication: PRODUCT USED FOR UNKNOWN INDICATION
     Dosage: UNK
     Route: 065
  2. ENTRESTO [Concomitant]
     Active Substance: SACUBITRIL\VALSARTAN
     Indication: PRODUCT USED FOR UNKNOWN INDICATION
     Dosage: UNK
     Route: 065
  3. COUMADIN [Suspect]
     Active Substance: WARFARIN SODIUM
     Indication: DEEP VEIN THROMBOSIS
  4. COUMADIN [Suspect]
     Active Substance: WARFARIN SODIUM
     Indication: FACTOR V LEIDEN MUTATION
     Dosage: 2MG ON TUESDAY, THURSDAY, FRIDAY, SATURDAY AND SUNDAY AND 1MG ON MONDAY AND WEDNESDAY
     Route: 048
     Dates: start: 2000

REACTIONS (4)
  - Cardiac disorder [Unknown]
  - Large intestinal haemorrhage [Unknown]
  - Cardiac failure congestive [Unknown]
  - Atrial fibrillation [Unknown]
